FAERS Safety Report 9240539 (Version 1)
Quarter: 2013Q1

REPORT INFORMATION
  Report Type: Spontaneous
  Country: US (occurrence: None)
  Receive Date: 20121120
  Receipt Date: 20121120
  Transmission Date: 20140127
  Serious: No
  Sender: FDA-Public Use
  Company Number: 1000038588

PATIENT
  Age: 56 Year
  Sex: Male

DRUGS (3)
  1. VIIBRYD [Suspect]
     Indication: DEPRESSION
     Dosage: 10 MG, 1 IN 1 D
     Route: 048
     Dates: start: 2011, end: 2011
  2. VIIBRYD [Suspect]
     Indication: DEPRESSION
     Dosage: 40 MG, 1 IN 1 D
     Route: 048
     Dates: start: 2011, end: 2012
  3. BUPROPION [Concomitant]

REACTIONS (1)
  - Anorgasmia [None]
